FAERS Safety Report 18322903 (Version 1)
Quarter: 2020Q3

REPORT INFORMATION
  Report Type: Spontaneous
  Country: US (occurrence: US)
  Receive Date: 20200929
  Receipt Date: 20200929
  Transmission Date: 20201103
  Serious: No
  Sender: FDA-Public Use
  Company Number: US-BTG-201800376

PATIENT
  Age: 76 Year
  Sex: Male

DRUGS (1)
  1. VARITHENA [Suspect]
     Active Substance: POLIDOCANOL
     Indication: PRODUCT USED FOR UNKNOWN INDICATION
     Dosage: VARITHENA 1% (18 ML CANISTER SIZE)
     Route: 065
     Dates: start: 20190910

REACTIONS (3)
  - Product availability issue [Unknown]
  - Product quality issue [Unknown]
  - Therapy change [Unknown]

NARRATIVE: CASE EVENT DATE: 20190910
